FAERS Safety Report 11343832 (Version 2)
Quarter: 2015Q3

REPORT INFORMATION
  Report Type: Spontaneous
  Country: US (occurrence: US)
  Receive Date: 20150806
  Receipt Date: 20150812
  Transmission Date: 20151125
  Serious: Yes (Other)
  Sender: FDA-Public Use
  Company Number: US-ROCHE-1618367

PATIENT
  Age: 72 Year
  Sex: Female

DRUGS (2)
  1. FASLODEX [Suspect]
     Active Substance: FULVESTRANT
     Indication: INVASIVE LOBULAR BREAST CARCINOMA
     Route: 065
     Dates: start: 201107, end: 201111
  2. XELODA [Suspect]
     Active Substance: CAPECITABINE
     Indication: INVASIVE LOBULAR BREAST CARCINOMA
     Route: 065
     Dates: start: 20111223

REACTIONS (4)
  - Drug ineffective [Unknown]
  - Ascites [Not Recovered/Not Resolved]
  - Metastasis [Unknown]
  - Tumour marker increased [Unknown]

NARRATIVE: CASE EVENT DATE: 201412
